FAERS Safety Report 8272504-5 (Version None)
Quarter: 2012Q2

REPORT INFORMATION
  Report Type: 
  Country: None (occurrence: None)
  Receive Date: 20120410
  Receipt Date: 20120404
  Transmission Date: 20120825
  Serious: Yes (Hospitalization)
  Sender: FDA-Public Use
  Company Number: US-AMGEN-USASP2011005985

PATIENT
  Age: 61 Year
  Sex: Female

DRUGS (1)
  1. ENBREL [Suspect]
     Indication: RHEUMATOID ARTHRITIS
     Dosage: 50 MG, QWK
     Dates: start: 20101222

REACTIONS (5)
  - FATIGUE [None]
  - HYPERTENSION [None]
  - CORONARY ARTERY OCCLUSION [None]
  - ASTHENIA [None]
  - JOINT SWELLING [None]
